FAERS Safety Report 22227635 (Version 1)
Quarter: 2023Q2

REPORT INFORMATION
  Report Type: Report from Study
  Country: FR (occurrence: FR)
  Receive Date: 20230419
  Receipt Date: 20230419
  Transmission Date: 20230721
  Serious: Yes (Other)
  Sender: FDA-Public Use
  Company Number: FR-SUN PHARMACEUTICAL INDUSTRIES LTD-2023RR-384700

PATIENT
  Age: 82 Year
  Sex: Female

DRUGS (3)
  1. GEMCITABINE [Suspect]
     Active Substance: GEMCITABINE
     Indication: Myxofibrosarcoma
     Dosage: 675 MILLIGRAM/SQ. METER, 1DOSE/2 WEEKS
     Route: 065
  2. DOXORUBICIN [Suspect]
     Active Substance: DOXORUBICIN
     Indication: Myxofibrosarcoma
     Dosage: UNK
     Route: 065
     Dates: start: 20220106
  3. SIROLIMUS [Suspect]
     Active Substance: SIROLIMUS
     Indication: Myxofibrosarcoma
     Dosage: 5 MILLIGRAM, DAILY
     Route: 065

REACTIONS (4)
  - Disease progression [Unknown]
  - Neutropenia [Unknown]
  - Anaemia [Unknown]
  - Fatigue [Unknown]
